FAERS Safety Report 6170768 (Version 2)
Quarter: 2013Q2

REPORT INFORMATION
  Report Type: Not Available
  Country: FR (occurrence: FR)
  Receive Date: 20061120
  Receipt Date: 20130625
  Transmission Date: 20140414
  Serious: Yes (Hospitalization, Disabling, Congenital Anomaly, Other)
  Sender: FDA-Public Use
  Company Number: FR-RB-004331-06

PATIENT
  Age: 1 Day
  Sex: Male
  Weight: 3.93 kg

DRUGS (4)
  1. SUBUTEX [Suspect]
     Indication: DRUG DEPENDENCE
     Route: 064
     Dates: start: 20050921, end: 20060615
  2. XANAX [Suspect]
     Indication: PRODUCT USED FOR UNKNOWN INDICATION
     Dosage: INTERMITTENTLY 4-5 MG QD
     Route: 064
     Dates: start: 20050921, end: 20060615
  3. IMOVANE [Concomitant]
     Indication: PRODUCT USED FOR UNKNOWN INDICATION
     Dosage: DOSAGE UNKNOWN
     Route: 064
  4. EFFERALGAN CODEINE [Concomitant]
     Indication: HEADACHE
     Dosage: DOSAGE UNKNOWN.  MOTHER TOOK FOR TWO DAYS BEFORE BIRTH.
     Route: 064

REACTIONS (9)
  - Paresis [Unknown]
  - Cleft palate [Unknown]
  - Congenital jaw malformation [Unknown]
  - Micrognathia [Unknown]
  - Congenital hearing disorder [Unknown]
  - Neonatal respiratory distress syndrome [Recovered/Resolved]
  - Drug withdrawal syndrome neonatal [Unknown]
  - Pierre Robin syndrome [Unknown]
  - Foetal exposure during pregnancy [Recovered/Resolved]
